FAERS Safety Report 4652568-8 (Version None)
Quarter: 2005Q2

REPORT INFORMATION
  Report Type: 
  Country: None (occurrence: None)
  Receive Date: 20050502
  Receipt Date: 20050421
  Transmission Date: 20051028
  Serious: Yes (Other)
  Sender: FDA-Public Use
  Company Number: 2005-03-0754

PATIENT
  Age: 3 Year
  Sex: Male

DRUGS (1)
  1. DESALEX (DESLORATADINE) SYRUP LIKE CLARINEX [Suspect]
     Indication: RHINITIS ALLERGIC
     Dosage: 5 ML QD ORAL
     Route: 048
     Dates: start: 20050309, end: 30050309

REACTIONS (3)
  - HALLUCINATIONS, MIXED [None]
  - INSOMNIA [None]
  - RESTLESSNESS [None]
